FAERS Safety Report 24593337 (Version 1)
Quarter: 2024Q4

REPORT INFORMATION
  Report Type: Spontaneous
  Country: GB (occurrence: GB)
  Receive Date: 20241108
  Receipt Date: 20241108
  Transmission Date: 20250115
  Serious: Yes (Hospitalization)
  Sender: MYLAN
  Company Number: GB-MYLANLABS-2023M1106854

PATIENT
  Sex: Male

DRUGS (6)
  1. CLOZARIL [Suspect]
     Active Substance: CLOZAPINE
     Indication: Schizophrenia
     Dosage: 650 MILLIGRAM, QD (200 MILLIGRAM IN MORNING AND 450 MILLIGRAM IN EVENING, DAILY)
     Route: 048
     Dates: start: 20050718
  2. CLOZARIL [Suspect]
     Active Substance: CLOZAPINE
     Dosage: 650 MILLIGRAM, QD (200 MILLIGRAM IN MORNING AND 450 MILLIGRAM IN EVENING, DAILY)
     Route: 048
  3. SERTRALINE [Concomitant]
     Active Substance: SERTRALINE HYDROCHLORIDE
     Dosage: 200 MILLIGRAM, QD (ONCE DAILY)
     Route: 048
  4. AMISULPRIDE [Concomitant]
     Active Substance: AMISULPRIDE
     Dosage: 100 MILLIGRAM, BID (TWICE A DAY)
     Route: 048
  5. EXENATIDE [Concomitant]
     Active Substance: EXENATIDE
     Dosage: UNK (AS PER GENERAL PRACTITIONER/DIABETES TEAM)
     Route: 065
  6. ATORVASTATIN [Concomitant]
     Active Substance: ATORVASTATIN
     Dosage: 20 MILLIGRAM, PM (ONCE AT NIGHT)
     Route: 048

REACTIONS (5)
  - Respiratory tract infection [Recovered/Resolved]
  - Chills [Recovered/Resolved]
  - Dyspnoea [Recovered/Resolved]
  - Malaise [Recovered/Resolved]
  - Loss of personal independence in daily activities [Not Recovered/Not Resolved]
